FAERS Safety Report 8810703 (Version 1)
Quarter: 2012Q4

REPORT INFORMATION
  Report Type: 
  Country: US (occurrence: US)
  Receive Date: 20120927
  Receipt Date: 20120927
  Transmission Date: 20130627
  Serious: No
  Sender: FDA-Public Use
  Company Number: US-PFIZER INC-2012237329

PATIENT
  Age: 45 Year
  Sex: Female
  Weight: 87.53 kg

DRUGS (1)
  1. NIFEDIPINE [Suspect]
     Indication: HYPERTENSION
     Dosage: UNK
     Dates: start: 2011

REACTIONS (2)
  - Nervousness [Unknown]
  - Drug ineffective [Unknown]
